FAERS Safety Report 18354742 (Version 1)
Quarter: 2020Q4

REPORT INFORMATION
  Report Type: Spontaneous
  Country: CA (occurrence: CA)
  Receive Date: 20201007
  Receipt Date: 20201007
  Transmission Date: 20210114
  Serious: Yes (Other)
  Sender: FDA-Public Use
  Company Number: CA-SA-2020SA274044

PATIENT

DRUGS (1)
  1. DUPIXENT [Suspect]
     Active Substance: DUPILUMAB
     Indication: DERMATITIS ATOPIC
     Dosage: UNK UNK, 1X

REACTIONS (5)
  - Condition aggravated [Unknown]
  - Cutaneous T-cell lymphoma [Unknown]
  - Skin discolouration [Unknown]
  - Skin plaque [Unknown]
  - Skin ulcer [Unknown]
